FAERS Safety Report 16630693 (Version 1)
Quarter: 2019Q3

REPORT INFORMATION
  Report Type: Spontaneous
  Country: FR (occurrence: FR)
  Receive Date: 20190725
  Receipt Date: 20190725
  Transmission Date: 20191004
  Serious: Yes (Hospitalization)
  Sender: FDA-Public Use
  Company Number: FR-ACCORD-148624

PATIENT
  Age: 53 Year
  Sex: Male
  Weight: 61 kg

DRUGS (1)
  1. OXALIPLATIN ACCORD [Suspect]
     Active Substance: OXALIPLATIN
     Indication: COLORECTAL CANCER METASTATIC
     Route: 041
     Dates: start: 20190702, end: 20190702

REACTIONS (11)
  - Nausea [Not Recovered/Not Resolved]
  - Vomiting [Not Recovered/Not Resolved]
  - Asthenia [Not Recovered/Not Resolved]
  - Pharyngeal paraesthesia [Recovering/Resolving]
  - Paraesthesia [Not Recovered/Not Resolved]
  - Dyspnoea [Recovering/Resolving]
  - Accidental overdose [Unknown]
  - Product prescribing error [Unknown]
  - Product communication issue [Unknown]
  - Cramp-fasciculation syndrome [Recovering/Resolving]
  - Wrong strength [Unknown]

NARRATIVE: CASE EVENT DATE: 20190702
